FAERS Safety Report 25524730 (Version 2)
Quarter: 2025Q4

REPORT INFORMATION
  Report Type: Spontaneous
  Country: US (occurrence: US)
  Receive Date: 20250707
  Receipt Date: 20251223
  Transmission Date: 20260118
  Serious: Yes (Hospitalization)
  Sender: MERCK SHARP & DOHME LLC
  Company Number: US-AstrazenecaRSG-7808-D7632C00001(Prod)000001

PATIENT
  Age: 70 Year
  Sex: Female
  Weight: 58 kg

DRUGS (11)
  1. PEMBROLIZUMAB [Suspect]
     Active Substance: PEMBROLIZUMAB
     Indication: Non-small cell lung cancer
     Dosage: 200 MG, ONCE EVERY 3 WK
     Route: 050
     Dates: start: 20250506, end: 20250506
  2. ASPIRIN [Concomitant]
     Active Substance: ASPIRIN
     Indication: Hypertension
     Dosage: 81 MG, QD
     Dates: start: 2015
  3. SIMVASTATIN [Concomitant]
     Active Substance: SIMVASTATIN
     Indication: Hyperlipidaemia
     Dosage: 80 MG, QD
     Dates: start: 2015
  4. LOSARTAN POTASSIUM [Concomitant]
     Active Substance: LOSARTAN POTASSIUM
     Indication: Hypertension
     Dosage: 100 MG, QD
     Dates: start: 2015
  5. DOCUSATE SODIUM [Concomitant]
     Active Substance: DOCUSATE SODIUM
     Indication: Constipation
     Dosage: 100 MG, ONCE EVERY 2 WK
     Dates: start: 2023
  6. IBUPROFEN [Concomitant]
     Active Substance: IBUPROFEN
     Indication: Foot fracture
     Dosage: 2400 MG, QD (800 MILLIGRAM, TID)
     Dates: start: 20241128
  7. DIAZEPAM [Concomitant]
     Active Substance: DIAZEPAM
     Indication: Anxiety
     Dosage: 10 MG, QD
     Dates: start: 20241201
  8. CLONAZEPAM [Concomitant]
     Active Substance: CLONAZEPAM
     Indication: Anxiety
     Dosage: 1 MG, QD (0.5 MILLIGRAM, BID)
     Dates: start: 20250221
  9. HYDROCHLOROTHIAZIDE [Concomitant]
     Active Substance: HYDROCHLOROTHIAZIDE
     Indication: Hypertension
     Dosage: 25 MG, QD
     Dates: start: 20250303
  10. LOTRIMIN [CLOTRIMAZOLE] [Concomitant]
     Indication: Fungal foot infection
     Dosage: 2 %, QD (1 PERCENT, BID)
     Dates: start: 20250408
  11. TRAMADOL HCL [Concomitant]
     Active Substance: TRAMADOL HYDROCHLORIDE
     Indication: Fracture
     Dosage: 100 MG, QD (50 MILLIGRAM, BID, PRN)
     Dates: start: 20250527, end: 20250907

REACTIONS (1)
  - Procedural haemorrhage [Recovered/Resolved]

NARRATIVE: CASE EVENT DATE: 20250611
